FAERS Safety Report 9660808 (Version 1)
Quarter: 2013Q4

REPORT INFORMATION
  Report Type: Spontaneous
  Country: US (occurrence: US)
  Receive Date: 20131031
  Receipt Date: 20131031
  Transmission Date: 20140711
  Serious: Yes (Other)
  Sender: FDA-Public Use
  Company Number: US-ELI_LILLY_AND_COMPANY-US201310009271

PATIENT
  Age: 63 Year
  Sex: Male

DRUGS (5)
  1. EFFIENT [Suspect]
     Indication: STENT PLACEMENT
     Dosage: 60 MG, UNKNOWN
     Route: 065
     Dates: start: 20131019, end: 20131019
  2. EFFIENT [Suspect]
     Dosage: 10 MG, UNKNOWN
     Route: 065
  3. ANGIOMAX [Concomitant]
     Indication: PERCUTANEOUS CORONARY INTERVENTION
     Dosage: UNK
     Route: 065
     Dates: start: 20131019, end: 20131019
  4. ANGIOMAX [Concomitant]
     Indication: ANTICOAGULANT THERAPY
  5. ASA [Concomitant]
     Indication: ACUTE CORONARY SYNDROME
     Dosage: 325 MG, UNKNOWN
     Route: 065
     Dates: start: 20131019

REACTIONS (1)
  - Thrombosis in device [Recovered/Resolved]
